FAERS Safety Report 5537606-2 (Version None)
Quarter: 2007Q4

REPORT INFORMATION
  Report Type: 
  Country: None (occurrence: None)
  Receive Date: 20071207
  Receipt Date: 20071126
  Transmission Date: 20080405
  Serious: Yes (Other)
  Sender: FDA-Public Use
  Company Number: BR-GILEAD-2007-0014498

PATIENT
  Age: 49 Year
  Sex: Male

DRUGS (5)
  1. VIREAD [Suspect]
  2. AMPRENAVIR [Concomitant]
  3. LAMIVUDINE [Concomitant]
  4. KALETRA [Concomitant]
  5. BEZAFIBRATE [Concomitant]

REACTIONS (4)
  - ASPARTATE AMINOTRANSFERASE INCREASED [None]
  - HYPOKALAEMIA [None]
  - QUADRIPARESIS [None]
  - RHABDOMYOLYSIS [None]
